FAERS Safety Report 5188067-7 (Version None)
Quarter: 2006Q4

REPORT INFORMATION
  Report Type: 
  Country: None (occurrence: None)
  Receive Date: 20061214
  Receipt Date: 20061214
  Transmission Date: 20070319
  Serious: Yes (Other)
  Sender: FDA-Public Use
  Company Number: None

PATIENT
  Sex: Female
  Weight: 48.9885 kg

DRUGS (2)
  1. PREVACID [Suspect]
     Indication: GASTRITIS
     Dosage: 30 MG QD PO
     Route: 048
     Dates: start: 20060710, end: 20061106
  2. PREVACID [Suspect]
     Indication: GASTROOESOPHAGEAL REFLUX DISEASE
     Dosage: 30 MG QD PO
     Route: 048
     Dates: start: 20060710, end: 20061106

REACTIONS (6)
  - DRUG INEFFECTIVE [None]
  - DRUG INTOLERANCE [None]
  - FOLLICULITIS [None]
  - GASTROENTERITIS [None]
  - PRURITUS GENERALISED [None]
  - RASH MACULO-PAPULAR [None]
